FAERS Safety Report 8549441-1 (Version None)
Quarter: 2012Q3

REPORT INFORMATION
  Report Type: 
  Country: None (occurrence: None)
  Receive Date: 20120730
  Receipt Date: 20120724
  Transmission Date: 20120928
  Serious: Yes (Hospitalization)
  Sender: FDA-Public Use
  Company Number: DE-ROCHE-1091896

PATIENT
  Age: 58 Year
  Sex: Male
  Weight: 62 kg

DRUGS (11)
  1. ASPIRIN [Concomitant]
     Route: 048
     Dates: start: 20120320
  2. TRAMADOL HCL [Concomitant]
     Indication: POLYARTHRITIS
     Route: 048
     Dates: start: 20111006
  3. ALENDRON [Concomitant]
     Indication: OSTEOPOROSIS
     Route: 048
     Dates: start: 20110825
  4. PREDNISOLONE [Concomitant]
     Route: 048
  5. AMITRIPTYLINE HYDROCHLORIDE [Concomitant]
     Indication: FIBROMYALGIA
     Route: 048
     Dates: start: 20110920
  6. PREDNISOLONE [Concomitant]
     Indication: POLYARTHRITIS
     Route: 048
     Dates: start: 20081229
  7. PANTOPRAZOLE [Concomitant]
     Route: 048
     Dates: start: 20120412
  8. AMLODIPINE [Concomitant]
     Indication: HYPERTONIA
     Route: 048
     Dates: start: 20120320
  9. FOLCUR [Concomitant]
     Indication: POLYARTHRITIS
     Route: 048
     Dates: start: 20080806
  10. MABTHERA [Suspect]
     Indication: POLYARTHRITIS
     Route: 042
     Dates: start: 20120105
  11. METHOTREXATE [Concomitant]
     Indication: POLYARTHRITIS
     Route: 058
     Dates: start: 20080806

REACTIONS (1)
  - POLYARTHRITIS [None]
